FAERS Safety Report 7207929-X (Version None)
Quarter: 2010Q4

REPORT INFORMATION
  Report Type: 
  Country: None (occurrence: None)
  Receive Date: 20101221
  Receipt Date: 20101206
  Transmission Date: 20110411
  Serious: Yes (Other)
  Sender: FDA-Public Use
  Company Number: 022169

PATIENT
  Sex: Female
  Weight: 84 kg

DRUGS (10)
  1. CIMZIA [Suspect]
     Indication: CROHN'S DISEASE
     Dosage: 400 MG 1X/MONTH SUBCUTANEOUS
     Route: 058
     Dates: start: 20081001
  2. BACTRIM [Suspect]
     Indication: URINARY TRACT INFECTION
     Dates: start: 20101030, end: 20101030
  3. LEVOTHYROXINE [Concomitant]
  4. METOPROLOL TARTRATE [Concomitant]
  5. PREMARIN [Concomitant]
  6. GABAPENTIN [Concomitant]
  7. FLUTICASONE PROPIONATE [Concomitant]
  8. RESTASIS [Concomitant]
  9. ENTOCORT EC [Concomitant]
  10. DEXLANSOPRAZOLE [Concomitant]

REACTIONS (13)
  - ANAPHYLACTIC REACTION [None]
  - CONDITION AGGRAVATED [None]
  - DRUG INEFFECTIVE [None]
  - DYSPEPSIA [None]
  - FUNGAL INFECTION [None]
  - HAEMATOCHEZIA [None]
  - INJECTION SITE DISCOLOURATION [None]
  - INJECTION SITE ERYTHEMA [None]
  - INJECTION SITE HAEMATOMA [None]
  - INJECTION SITE HAEMORRHAGE [None]
  - INJECTION SITE MASS [None]
  - SINUSITIS [None]
  - URINARY TRACT INFECTION [None]
